FAERS Safety Report 9563230 (Version 2)
Quarter: 2013Q4

REPORT INFORMATION
  Report Type: Spontaneous
  Country: DE (occurrence: DE)
  Receive Date: 20130927
  Receipt Date: 20131014
  Transmission Date: 20140711
  Serious: No
  Sender: FDA-Public Use
  Company Number: DE-SHIRE-ALL1-2013-06318

PATIENT
  Age: 8 Year
  Sex: Male
  Weight: 30 kg

DRUGS (2)
  1. ELVANSE [Suspect]
     Indication: ATTENTION DEFICIT/HYPERACTIVITY DISORDER
     Dosage: 30 MG, 1X/DAY:QD
     Route: 048
     Dates: start: 20130606
  2. ELVANSE [Suspect]
     Indication: ANTISOCIAL BEHAVIOUR

REACTIONS (1)
  - Obsessive-compulsive disorder [Recovered/Resolved]
